FAERS Safety Report 24774502 (Version 1)
Quarter: 2024Q4

REPORT INFORMATION
  Report Type: Spontaneous
  Country: US (occurrence: US)
  Receive Date: 20241225
  Receipt Date: 20241225
  Transmission Date: 20250115
  Serious: No
  Sender: ACCORD
  Company Number: US-Accord-408835

PATIENT
  Age: 45 Year
  Sex: Male

DRUGS (3)
  1. BUPROPION HYDROCHLORIDE [Suspect]
     Active Substance: BUPROPION HYDROCHLORIDE
     Indication: Autonomic nervous system imbalance
     Dosage: EXTENDED-RELEASE TABLETS
     Route: 048
     Dates: start: 20240213
  2. NORTRIPTYLINE [Concomitant]
     Active Substance: NORTRIPTYLINE
  3. LINACLOTIDE [Concomitant]
     Active Substance: LINACLOTIDE

REACTIONS (5)
  - Abdominal pain [Unknown]
  - Headache [Unknown]
  - Off label use [Unknown]
  - Dizziness [Unknown]
  - Product substitution issue [Unknown]

NARRATIVE: CASE EVENT DATE: 20240201
